FAERS Safety Report 11004500 (Version 2)
Quarter: 2015Q2

REPORT INFORMATION
  Report Type: Report from Study
  Country: JP (occurrence: JP)
  Receive Date: 20150409
  Receipt Date: 20150617
  Transmission Date: 20150821
  Serious: Yes (Other)
  Sender: FDA-Public Use
  Company Number: JP-OTSUKA-JP-2015-11669

PATIENT

DRUGS (32)
  1. NITOPRO [Concomitant]
     Indication: CARDIAC FAILURE
     Dosage: 30 MG/DAY
     Route: 041
     Dates: start: 20130902, end: 20130908
  2. DOBUTREX [Concomitant]
     Active Substance: DOBUTAMINE HYDROCHLORIDE
     Indication: CARDIAC FAILURE
     Dosage: 3 UG/KG/MIN
     Route: 041
     Dates: start: 20130902, end: 20130913
  3. KALIMATE [Concomitant]
     Active Substance: CALCIUM POLYSTYRENE SULFONATE
     Indication: PRODUCT USED FOR UNKNOWN INDICATION
     Dosage: 15 G/DAY
     Route: 048
  4. LASIX M [Concomitant]
     Active Substance: FUROSEMIDE
     Indication: CARDIAC FAILURE
     Dosage: 40 MG/DAY
     Route: 048
  5. ESOMEPRAZOLE MAGNESIUM HYDRATE [Concomitant]
     Indication: PRODUCT USED FOR UNKNOWN INDICATION
     Dosage: 20 MG/DAY
     Route: 048
  6. HEPARINOID [Concomitant]
     Active Substance: CHONDROITIN SULFATE (BOVINE)
     Indication: PRODUCT USED FOR UNKNOWN INDICATION
     Dosage: UNK, QD
     Route: 062
     Dates: start: 20121103
  7. TOLVAPTAN [Suspect]
     Active Substance: TOLVAPTAN
     Indication: OEDEMA DUE TO CARDIAC DISEASE
     Dosage: 7.5 MG, QD
     Route: 048
     Dates: start: 20130903
  8. ARTIST [Concomitant]
     Active Substance: CARVEDILOL
     Indication: CARDIAC FAILURE
     Dosage: 2.5 MG/DAY
     Route: 048
  9. WYSTAL [Concomitant]
     Active Substance: CEFOPERAZONE SODIUM\SULBACTAM SODIUM
     Indication: PRODUCT USED FOR UNKNOWN INDICATION
     Dosage: 2 G/DAY
     Route: 042
     Dates: start: 20130902, end: 20130905
  10. VEEN-F [Concomitant]
     Indication: FLUID REPLACEMENT
     Dosage: 500 ML/DAY
     Route: 041
     Dates: start: 20130903, end: 20130914
  11. DIART [Concomitant]
     Active Substance: AZOSEMIDE
     Indication: CARDIAC FAILURE
     Dosage: 60 MG/DAY
     Route: 048
     Dates: start: 20130903
  12. MEROPENEM HYDRATE [Concomitant]
     Active Substance: MEROPENEM
     Indication: CARDIAC FAILURE
     Dosage: 0.5 G/DAY
     Route: 042
     Dates: start: 20130903, end: 20130918
  13. NU-LOTAN [Concomitant]
     Active Substance: LOSARTAN POTASSIUM
     Indication: PRODUCT USED FOR UNKNOWN INDICATION
     Dosage: 25 MG/DAY
     Route: 048
  14. NEOAMIYU [Concomitant]
     Active Substance: AMINO ACIDS
     Indication: CARDIAC FAILURE
     Dosage: 200 ML/DAY
     Route: 041
     Dates: start: 20130903, end: 20130914
  15. MOHRUS L [Concomitant]
     Active Substance: KETOPROFEN
     Indication: PRODUCT USED FOR UNKNOWN INDICATION
     Dosage: 1 DF/DAY
     Route: 062
  16. MS REISHIPPU [Concomitant]
     Active Substance: CAMPHOR\MENTHOL\METHYL SALICYLATE
     Indication: PRODUCT USED FOR UNKNOWN INDICATION
     Dosage: 1 DF/DAY
  17. PROPOFOL. [Concomitant]
     Active Substance: PROPOFOL
     Indication: SEDATION
     Dosage: 20 ML/DAY
     Route: 042
     Dates: start: 20130903, end: 20130903
  18. LASIX M [Concomitant]
     Active Substance: FUROSEMIDE
     Indication: CARDIAC FAILURE
     Dosage: 60 MG/DAY
     Route: 042
     Dates: start: 20130903, end: 20130914
  19. DOPAMINE HYDROCHLORIDE. [Concomitant]
     Active Substance: DOPAMINE HYDROCHLORIDE
     Indication: CARDIAC FAILURE
     Dosage: 3 ?/DAY
     Route: 042
     Dates: start: 20130902, end: 20130908
  20. INTRAVENOUS HYPERALIMENTATIVE BASIC SOLUTION [Concomitant]
     Indication: CARDIAC FAILURE
     Dosage: 500 ML/DAY
     Route: 042
     Dates: start: 20130903, end: 20130914
  21. ENTERONON-R [Concomitant]
     Active Substance: PROBIOTICS NOS
     Indication: PRODUCT USED FOR UNKNOWN INDICATION
     Dosage: 3 G/DAY
     Route: 048
  22. WARFARIN [Concomitant]
     Active Substance: WARFARIN
     Indication: PRODUCT USED FOR UNKNOWN INDICATION
     Dosage: 2 MG/DAY
     Route: 048
  23. HORIZON [Concomitant]
     Active Substance: DIAZEPAM
     Indication: ENDOTRACHEAL INTUBATION
     Dosage: 3 MG/DAY
     Route: 042
     Dates: start: 20130903, end: 20130903
  24. HANP [Concomitant]
     Active Substance: CARPERITIDE
     Indication: CARDIAC FAILURE
     Dosage: 0.025 ?/DAY
     Route: 041
     Dates: start: 20130903, end: 20130912
  25. MLTIPLE VITAMIN FOR TOTAL PARENTERAL NUTRITION [Concomitant]
     Indication: CARDIAC FAILURE
     Dosage: 1 DF/DAY
     Route: 042
     Dates: start: 20130903, end: 20130914
  26. MANGANESE CHLORIDE AND ZINC SULFATE COMBINED [Concomitant]
     Indication: CARDIAC FAILURE
     Dosage: 2 ML/DAY
     Route: 042
     Dates: start: 20130903, end: 20130914
  27. PANTHENOL [Concomitant]
     Active Substance: PANTHENOL
     Indication: CARDIAC FAILURE
     Dosage: 500 MG/DAY
     Route: 042
     Dates: start: 20130903, end: 20130914
  28. MIYA-BM [Concomitant]
     Active Substance: CLOSTRIDIUM BUTYRICUM SPORES STRAIN M-55
     Indication: PRODUCT USED FOR UNKNOWN INDICATION
     Dosage: 3 G/DAY
     Route: 048
  29. TAKEPRON [Concomitant]
     Active Substance: LANSOPRAZOLE
     Indication: PRODUCT USED FOR UNKNOWN INDICATION
     Dosage: 15 MG/DAY
     Route: 048
  30. HUMULIN R [Concomitant]
     Active Substance: INSULIN HUMAN
     Indication: PRODUCT USED FOR UNKNOWN INDICATION
     Dosage: 10 IU/DAY
     Route: 058
     Dates: start: 20130903, end: 20130903
  31. PENTAZOCINE [Concomitant]
     Active Substance: PENTAZOCINE
     Indication: ENDOTRACHEAL INTUBATION
     Dosage: 15 MG/DAY
     Route: 042
     Dates: start: 20130903, end: 20130903
  32. OMEPRAZOLE. [Concomitant]
     Active Substance: OMEPRAZOLE
     Indication: PROPHYLAXIS
     Dosage: 20 MG/DAY
     Route: 042
     Dates: start: 20130903, end: 20130908

REACTIONS (2)
  - Hyperuricaemia [Recovering/Resolving]
  - Renal impairment [Recovering/Resolving]

NARRATIVE: CASE EVENT DATE: 20130905
